FAERS Safety Report 15227817 (Version 3)
Quarter: 2018Q3

REPORT INFORMATION
  Report Type: Report from Study
  Country: RU (occurrence: RU)
  Receive Date: 20180801
  Receipt Date: 20180925
  Transmission Date: 20181010
  Serious: Yes (Hospitalization)
  Sender: FDA-Public Use
  Company Number: RU-CELGENEUS-RUS-20180709246

PATIENT
  Age: 81 Year
  Sex: Male
  Weight: 74.1 kg

DRUGS (2)
  1. CC?5013 [Suspect]
     Active Substance: LENALIDOMIDE
     Indication: MANTLE CELL LYMPHOMA
     Dosage: 25 MILLIGRAM
     Route: 048
     Dates: start: 20151021
  2. CC?5013 [Suspect]
     Active Substance: LENALIDOMIDE
     Dosage: 25 MILLIGRAM
     Route: 048
     Dates: start: 20180628, end: 20180723

REACTIONS (1)
  - Glioblastoma [Recovered/Resolved]

NARRATIVE: CASE EVENT DATE: 20180724
